FAERS Safety Report 8452772-7 (Version None)
Quarter: 2012Q2

REPORT INFORMATION
  Report Type: 
  Country: None (occurrence: None)
  Receive Date: 20120323
  Receipt Date: 20111102
  Transmission Date: 20120825
  Serious: Yes (Hospitalization)
  Sender: FDA-Public Use
  Company Number: 163-21880-11110568

PATIENT
  Age: 72 Year
  Sex: Female
  Weight: 47.6 kg

DRUGS (12)
  1. VESICARE [Concomitant]
  2. NAPROSYN [Concomitant]
  3. VALTREX [Concomitant]
  4. LASIX [Concomitant]
  5. MEGACE [Concomitant]
  6. ZOLOFT [Concomitant]
  7. REVLIMID [Suspect]
     Indication: AMYLOIDOSIS
     Dosage: 25 MG, DAILY X 21 DAYS, PO
     Route: 048
     Dates: start: 20110616, end: 20111027
  8. DECADRON [Concomitant]
  9. SENOKOT [Concomitant]
  10. ASPIRIN [Concomitant]
  11. MIRALAX [Concomitant]
  12. ZOCOR [Concomitant]

REACTIONS (1)
  - PANCYTOPENIA [None]
